FAERS Safety Report 4559276-2 (Version None)
Quarter: 2005Q1

REPORT INFORMATION
  Report Type: 
  Country: None (occurrence: None)
  Receive Date: 20050124
  Receipt Date: 20050113
  Transmission Date: 20050727
  Serious: Yes (Other)
  Sender: FDA-Public Use
  Company Number: US-ROCHE-392634

PATIENT
  Age: 54 Year
  Sex: Male
  Weight: 88.5 kg

DRUGS (3)
  1. PEGASYS [Suspect]
     Route: 058
     Dates: start: 20041208
  2. COPEGUS [Suspect]
     Route: 048
     Dates: start: 20041208
  3. PERCOCET [Concomitant]
     Indication: CARPAL TUNNEL SYNDROME
     Dosage: TAKEN AS NEEDED.
     Route: 048

REACTIONS (6)
  - ABDOMINAL PAIN [None]
  - IRRITABILITY [None]
  - LACERATION [None]
  - LIMB INJURY [None]
  - NAUSEA [None]
  - NERVOUSNESS [None]
